FAERS Safety Report 7359798-5 (Version None)
Quarter: 2011Q1

REPORT INFORMATION
  Report Type: 
  Country: None (occurrence: None)
  Receive Date: 20110307
  Receipt Date: 20110226
  Transmission Date: 20110831
  Serious: Yes (Life-Threatening, Hospitalization)
  Sender: FDA-Public Use
  Company Number: LEO-2011-00170

PATIENT
  Age: 41 Year
  Sex: Female

DRUGS (3)
  1. INNOHEP [Suspect]
     Indication: EMBOLISM VENOUS
     Dosage: 8000 IU (8000 IU, 1 IN 1 D) SUBCUTANEOUS, 8000 IU (8000 IU, 1 IN 1 D), SUBCUTANEOUS
     Route: 058
     Dates: start: 20110108
  2. INNOHEP [Suspect]
     Indication: EMBOLISM VENOUS
     Dosage: 8000 IU (8000 IU, 1 IN 1 D) SUBCUTANEOUS, 8000 IU (8000 IU, 1 IN 1 D), SUBCUTANEOUS
     Route: 058
     Dates: start: 20100831, end: 20110103
  3. FOLIC ACID W/IRON (FOLIC ACID, IRON) [Concomitant]

REACTIONS (7)
  - WHITE BLOOD CELL COUNT INCREASED [None]
  - DUODENITIS HAEMORRHAGIC [None]
  - ANAEMIA [None]
  - PLATELET COUNT INCREASED [None]
  - ASTHENIA [None]
  - INTERNATIONAL NORMALISED RATIO DECREASED [None]
  - GASTRITIS [None]
